FAERS Safety Report 16994681 (Version 3)
Quarter: 2019Q4

REPORT INFORMATION
  Report Type: Spontaneous
  Country: JP (occurrence: JP)
  Receive Date: 20191105
  Receipt Date: 20191226
  Transmission Date: 20200122
  Serious: Yes (Hospitalization, Other)
  Sender: FDA-Public Use
  Company Number: JP-PFIZER INC-2018159925

PATIENT
  Age: 57 Year
  Sex: Male

DRUGS (1)
  1. ANCARON [Suspect]
     Active Substance: AMIODARONE HYDROCHLORIDE
     Indication: VENTRICULAR TACHYCARDIA
     Dosage: UNK
     Route: 048

REACTIONS (6)
  - Goitre [Unknown]
  - Goitre [Recovering/Resolving]
  - Hyperthyroidism [Unknown]
  - Ultrasound thyroid abnormal [Recovering/Resolving]
  - Hyperthyroidism [Recovering/Resolving]
  - Autoimmune thyroid disorder [Unknown]
